FAERS Safety Report 4771317-6 (Version None)
Quarter: 2005Q3

REPORT INFORMATION
  Report Type: 
  Country: None (occurrence: None)
  Receive Date: 20050914
  Receipt Date: 20050829
  Transmission Date: 20060218
  Serious: Yes (Hospitalization, Other)
  Sender: FDA-Public Use
  Company Number: USA0508106806

PATIENT
  Age: 81 Year
  Sex: Female

DRUGS (5)
  1. FORTEO [Suspect]
     Indication: OSTEOPOROSIS
     Dates: start: 20050501
  2. PROTONIX [Concomitant]
  3. ACETAMINOPHEN W/ PROPOXYPHENE HCL [Concomitant]
  4. AMBIEN [Concomitant]
  5. SYNTHROID [Concomitant]

REACTIONS (1)
  - DEEP VEIN THROMBOSIS [None]
